FAERS Safety Report 7482566-0 (Version None)
Quarter: 2011Q2

REPORT INFORMATION
  Report Type: 
  Country: None (occurrence: None)
  Receive Date: 20110516
  Receipt Date: 20110509
  Transmission Date: 20111010
  Serious: Yes (Other)
  Sender: FDA-Public Use
  Company Number: GB-BAXTER-2011BH015667

PATIENT
  Age: 33 Year
  Sex: Female

DRUGS (12)
  1. DOXORUBICIN HCL [Suspect]
     Indication: BURKITT'S LYMPHOMA
     Route: 065
  2. CYCLOPHOSPHAMIDE [Suspect]
     Indication: BURKITT'S LYMPHOMA
     Route: 065
  3. METHOTREXATE [Suspect]
     Indication: BURKITT'S LYMPHOMA
     Route: 065
  4. EMTRICITABINE [Concomitant]
     Indication: ANTIRETROVIRAL THERAPY
     Route: 065
  5. ISENTRESS [Concomitant]
     Indication: ANTIRETROVIRAL THERAPY
     Route: 065
  6. TENOFOVIR DISOPROXIL FUMARATE [Concomitant]
     Indication: ANTIRETROVIRAL THERAPY
     Route: 065
  7. CYTARABINE [Suspect]
     Indication: BURKITT'S LYMPHOMA
     Route: 065
  8. IFOSFAMIDE [Suspect]
     Indication: BURKITT'S LYMPHOMA
     Route: 065
  9. ANTIPSYCHOTICS [Concomitant]
     Indication: BIPOLAR DISORDER
     Route: 065
  10. INTELENCE [Concomitant]
     Indication: ANTIRETROVIRAL THERAPY
     Route: 065
  11. VINCRISTINE SULFATE [Suspect]
     Indication: BURKITT'S LYMPHOMA
     Route: 065
  12. ETOPOSIDE [Suspect]
     Indication: BURKITT'S LYMPHOMA
     Route: 065

REACTIONS (4)
  - PNEUMOCYSTIS JIROVECI PNEUMONIA [None]
  - OESOPHAGEAL CANDIDIASIS [None]
  - BONE MARROW FAILURE [None]
  - MUCOSAL INFLAMMATION [None]
